FAERS Safety Report 15251276 (Version 5)
Quarter: 2019Q4

REPORT INFORMATION
  Report Type: Spontaneous
  Country: JP (occurrence: JP)
  Receive Date: 20180807
  Receipt Date: 20191209
  Transmission Date: 20200122
  Serious: Yes (Life-Threatening, Hospitalization)
  Sender: FDA-Public Use
  Company Number: JP-B.I. PHARMACEUTICALS,INC./RIDGEFIELD-2018-NB-004223

PATIENT
  Age: 66 Year
  Sex: Female
  Weight: 40.6 kg

DRUGS (4)
  1. ROSUVASTATIN [ROSUVASTATIN CALCIUM] [Concomitant]
     Active Substance: ROSUVASTATIN CALCIUM
     Indication: DYSLIPIDAEMIA
     Route: 048
     Dates: end: 20180728
  2. INISYNC [Concomitant]
     Active Substance: ALOGLIPTIN BENZOATE\METFORMIN HYDROCHLORIDE
     Indication: TYPE 2 DIABETES MELLITUS
     Route: 048
     Dates: end: 20180724
  3. NESINA [Concomitant]
     Active Substance: ALOGLIPTIN BENZOATE
     Indication: TYPE 2 DIABETES MELLITUS
     Route: 048
     Dates: start: 20180723, end: 20180728
  4. JARDIANCE [Suspect]
     Active Substance: EMPAGLIFLOZIN
     Indication: TYPE 2 DIABETES MELLITUS
     Route: 048
     Dates: start: 201801, end: 20180724

REACTIONS (6)
  - Urine output increased [Unknown]
  - Soliloquy [Recovering/Resolving]
  - Physical deconditioning [Recovering/Resolving]
  - Heat illness [Recovering/Resolving]
  - Restlessness [Recovering/Resolving]
  - Euglycaemic diabetic ketoacidosis [Recovered/Resolved]

NARRATIVE: CASE EVENT DATE: 20180723
